FAERS Safety Report 24593129 (Version 1)
Quarter: 2024Q4

REPORT INFORMATION
  Report Type: Report from Study
  Country: GB (occurrence: GB)
  Receive Date: 20241108
  Receipt Date: 20241108
  Transmission Date: 20250115
  Serious: Yes (Hospitalization, Other)
  Sender: MYLAN
  Company Number: GB-MYLANLABS-2024M1099851

PATIENT
  Sex: Female

DRUGS (1)
  1. GLATIRAMER ACETATE [Suspect]
     Active Substance: GLATIRAMER ACETATE
     Indication: Multiple sclerosis
     Dosage: 40 MILLIGRAM, 3XW
     Route: 058

REACTIONS (3)
  - Cerebral haemorrhage [Not Recovered/Not Resolved]
  - Sinus node dysfunction [Not Recovered/Not Resolved]
  - Spina bifida [Not Recovered/Not Resolved]
